FAERS Safety Report 19205197 (Version 1)
Quarter: 2021Q2

REPORT INFORMATION
  Report Type: Spontaneous
  Country: US (occurrence: US)
  Receive Date: 20210503
  Receipt Date: 20210503
  Transmission Date: 20210717
  Serious: No
  Sender: FDA-Public Use
  Company Number: US-JNJFOC-20210418665

PATIENT
  Age: 63 Year
  Sex: Female

DRUGS (8)
  1. COVID?19 VACCINE NOS. [Concomitant]
     Active Substance: COVID-19 VACCINE NOS
     Indication: PRODUCT USED FOR UNKNOWN INDICATION
     Route: 065
     Dates: start: 20210227
  2. TYLENOL [Suspect]
     Active Substance: ACETAMINOPHEN
     Indication: MALAISE
  3. ADVIL [Concomitant]
     Active Substance: IBUPROFEN
     Indication: MALAISE
  4. COVID?19 VACCINE NOS. [Concomitant]
     Active Substance: COVID-19 VACCINE NOS
     Route: 065
     Dates: start: 20210320
  5. TYLENOL [Suspect]
     Active Substance: ACETAMINOPHEN
     Indication: FATIGUE
     Route: 065
     Dates: start: 202103
  6. ADVIL [Concomitant]
     Active Substance: IBUPROFEN
     Indication: FATIGUE
     Route: 065
     Dates: start: 202103
  7. ADVIL [Concomitant]
     Active Substance: IBUPROFEN
     Indication: COUGH
  8. TYLENOL [Suspect]
     Active Substance: ACETAMINOPHEN
     Indication: COUGH

REACTIONS (1)
  - Product use in unapproved indication [Unknown]

NARRATIVE: CASE EVENT DATE: 202103
